FAERS Safety Report 6443680-1 (Version None)
Quarter: 2009Q4

REPORT INFORMATION
  Report Type: 
  Country: None (occurrence: None)
  Receive Date: 20091117
  Receipt Date: 20091112
  Transmission Date: 20100525
  Serious: Yes (Life-Threatening)
  Sender: FDA-Public Use
  Company Number: JP-EISAI INC.-E2090-00879-SPO-JP

PATIENT
  Sex: Female

DRUGS (10)
  1. EXCEGRAN [Suspect]
     Indication: EPILEPSY
     Route: 048
     Dates: start: 20061226
  2. DEPAKENE [Concomitant]
  3. SPELEAR [Concomitant]
  4. BIOFERMIN [Concomitant]
  5. GASTER [Concomitant]
  6. TEGRETOL [Concomitant]
  7. GABAPENTIN [Concomitant]
  8. CERCINE [Concomitant]
  9. RIVOTRIL [Concomitant]
  10. SANMEL [Concomitant]

REACTIONS (1)
  - ANAEMIA [None]
